FAERS Safety Report 12712540 (Version 1)
Quarter: 2016Q3

REPORT INFORMATION
  Report Type: Spontaneous
  Country: FR (occurrence: FR)
  Receive Date: 20160902
  Receipt Date: 20160902
  Transmission Date: 20161109
  Serious: Yes (Hospitalization)
  Sender: FDA-Public Use
  Company Number: FR-MYLANLABS-2016M1037346

PATIENT

DRUGS (9)
  1. PLAVIX [Suspect]
     Active Substance: CLOPIDOGREL BISULFATE
     Indication: PERIPHERAL ARTERY BYPASS
     Dosage: 75 MG, QD
     Route: 048
     Dates: end: 201606
  2. PRINCI B [Concomitant]
     Active Substance: PYRIDOXINE\THIAMINE
     Dosage: 4 DF, QD
  3. IMOVANE [Concomitant]
     Active Substance: ZOPICLONE
     Dosage: 7.5 MG, QD
  4. MOVICOL [Concomitant]
     Active Substance: POLYETHYLENE GLYCOL 3350\POTASSIUM CHLORIDE\SODIUM BICARBONATE\SODIUM CHLORIDE
     Dosage: UNK
  5. KARDEGIC (DL LYSINE ACETYLSALICYLATE) [Concomitant]
     Indication: PERIPHERAL ARTERY BYPASS
     Dosage: UNK
     Dates: start: 20160615, end: 20160618
  6. TRAMADOL. [Concomitant]
     Active Substance: TRAMADOL
     Dosage: 6 DF, QD
  7. AMLODIPINE [Concomitant]
     Active Substance: AMLODIPINE BESYLATE
     Dosage: 5 MG, QD
  8. LOVENOX [Concomitant]
     Active Substance: ENOXAPARIN SODIUM
     Indication: THROMBOSIS PROPHYLAXIS
     Dosage: UNK
     Dates: start: 201606, end: 20160623
  9. FONDAPARINUX [Suspect]
     Active Substance: FONDAPARINUX
     Indication: THROMBOSIS PROPHYLAXIS
     Dosage: 2.5 MG, QD
     Route: 058
     Dates: start: 20160625, end: 20160704

REACTIONS (2)
  - Post procedural haematoma [Unknown]
  - Drug interaction [Unknown]

NARRATIVE: CASE EVENT DATE: 2016
